FAERS Safety Report 21975507 (Version 1)
Quarter: 2023Q1

REPORT INFORMATION
  Report Type: Spontaneous
  Country: FR (occurrence: FR)
  Receive Date: 20230210
  Receipt Date: 20230210
  Transmission Date: 20230418
  Serious: Yes (Hospitalization, Other)
  Sender: FDA-Public Use
  Company Number: FR-ROCHE-3271466

PATIENT
  Age: 35 Year
  Sex: Male

DRUGS (15)
  1. SERTRALINE [Suspect]
     Active Substance: SERTRALINE HYDROCHLORIDE
     Indication: Product used for unknown indication
     Dosage: 25 MILLIGRAM, ONCE A DAY
     Route: 065
  2. BUPRENORPHINE [Suspect]
     Active Substance: BUPRENORPHINE
     Indication: Product used for unknown indication
     Dosage: 2.8 MILLIGRAM, ONCE A DAY
     Route: 065
  3. ALCOHOL [Suspect]
     Active Substance: ALCOHOL
     Indication: Product used for unknown indication
     Dosage: ALCOHOL CONSUMPTION WEARED OFF SINCE 2020
     Route: 065
     Dates: start: 2020
  4. RIVOTRIL [Suspect]
     Active Substance: CLONAZEPAM
     Indication: Anxiety disorder
     Dosage: UNK
     Route: 048
     Dates: start: 2001
  5. RIVOTRIL [Suspect]
     Active Substance: CLONAZEPAM
     Indication: Epilepsy
     Dosage: 25 MILLIGRAM, ONCE A DAY
     Route: 048
     Dates: start: 2022
  6. CANNABIS SATIVA SUBSP. INDICA TOP [Suspect]
     Active Substance: CANNABIS SATIVA SUBSP. INDICA TOP
     Indication: Product used for unknown indication
     Dosage: 2 TO 3G/DAY SINCE THE AGE OF 14 ; AT A DOSE OF 3 MG IN THE EVENING
     Dates: start: 2001
  7. COCAINE [Suspect]
     Active Substance: COCAINE
     Indication: Product used for unknown indication
     Dosage: UP TO 10G/D
     Route: 045
     Dates: start: 2017
  8. COCAINE [Suspect]
     Active Substance: COCAINE
     Dosage: OCCASIONAL
     Route: 045
     Dates: start: 2019
  9. VALPROATE SODIUM [Suspect]
     Active Substance: VALPROATE SODIUM
     Indication: Epilepsy
     Dosage: UNK
     Route: 065
     Dates: start: 2017
  10. LYRICA [Suspect]
     Active Substance: PREGABALIN
     Indication: Product used for unknown indication
     Dosage: UP TO 900 MG/D
     Route: 048
     Dates: start: 20220926
  11. GLYCOPYRROLATE [Suspect]
     Active Substance: GLYCOPYRROLATE
     Indication: Product used for unknown indication
     Dosage: 1-0-0
     Route: 065
  12. TOBACCO LEAF [Suspect]
     Active Substance: TOBACCO LEAF
     Indication: Product used for unknown indication
     Dosage: SUBUTEX IS INCREASED AGAIN TO 3 MG/DAY
  13. VALIUM [Suspect]
     Active Substance: DIAZEPAM
     Indication: Product used for unknown indication
     Dosage: 8 A.M. 11 A.M. 2 P.M. 5 P.M. 8 P.M. 11 P.M
     Route: 065
  14. VALIUM [Suspect]
     Active Substance: DIAZEPAM
     Dosage: 5 MILLIGRAM, ONCE A DAY
     Route: 065
  15. VALIUM [Suspect]
     Active Substance: DIAZEPAM
     Dosage: 60 MILLIGRAM, ONCE A DAY
     Route: 065

REACTIONS (5)
  - Drug abuse [Unknown]
  - Drug dependence [Recovering/Resolving]
  - Anxiety [Recovering/Resolving]
  - Chest discomfort [Recovering/Resolving]
  - Obstructive airways disorder [Recovering/Resolving]

NARRATIVE: CASE EVENT DATE: 20010101
